FAERS Safety Report 10120949 (Version 1)
Quarter: 2014Q2

REPORT INFORMATION
  Report Type: Report from Study
  Country: US (occurrence: US)
  Receive Date: 20140425
  Receipt Date: 20140425
  Transmission Date: 20141212
  Serious: Yes (Hospitalization, Other)
  Sender: FDA-Public Use
  Company Number: US-ABBVIE-14P-163-1227594-00

PATIENT
  Age: 28 Year
  Sex: Male
  Weight: 49.94 kg

DRUGS (10)
  1. NORVIR [Suspect]
     Indication: HIV INFECTION
     Dates: start: 201308
  2. NORVIR [Suspect]
     Indication: HIV INFECTION
     Dates: start: 20140415, end: 20140417
  3. ACYCLOVIR [Concomitant]
     Indication: PRODUCT USED FOR UNKNOWN INDICATION
  4. PREZISTA [Concomitant]
     Indication: PRODUCT USED FOR UNKNOWN INDICATION
  5. ISENTRESS [Concomitant]
     Indication: PRODUCT USED FOR UNKNOWN INDICATION
  6. MEPRON [Concomitant]
     Indication: PRODUCT USED FOR UNKNOWN INDICATION
     Dosage: SUSPENSION
  7. ETHAMBUTOL [Concomitant]
     Indication: PRODUCT USED FOR UNKNOWN INDICATION
  8. AZITHROMYCIN [Concomitant]
     Indication: PRODUCT USED FOR UNKNOWN INDICATION
  9. PERIACTIN [Concomitant]
     Indication: PRODUCT USED FOR UNKNOWN INDICATION
  10. ZANTAC [Concomitant]
     Indication: PRODUCT USED FOR UNKNOWN INDICATION

REACTIONS (8)
  - Kaposi^s sarcoma [Unknown]
  - Asthenia [Unknown]
  - Lethargy [Unknown]
  - Tachycardia [Unknown]
  - Haemoglobin decreased [Unknown]
  - End stage AIDS [Unknown]
  - Nausea [Unknown]
  - Vomiting [Unknown]
